FAERS Safety Report 6675057-8 (Version None)
Quarter: 2010Q2

REPORT INFORMATION
  Report Type: 
  Country: None (occurrence: None)
  Receive Date: 20100409
  Receipt Date: 20100408
  Transmission Date: 20101027
  Serious: Yes (Other)
  Sender: FDA-Public Use
  Company Number: IT-ROXANE LABORATORIES, INC.-2010-RO-00395RO

PATIENT
  Age: 47 Year
  Sex: Female

DRUGS (4)
  1. TOPIRAMATE [Suspect]
     Indication: MIGRAINE PROPHYLAXIS
  2. PROPRANOLOL [Suspect]
     Indication: MIGRAINE PROPHYLAXIS
  3. AMITRIPTYLINE HCL [Suspect]
     Indication: MIGRAINE PROPHYLAXIS
  4. FLUNARIZINE [Suspect]
     Indication: MIGRAINE PROPHYLAXIS

REACTIONS (3)
  - COUGH [None]
  - DRUG INEFFECTIVE [None]
  - PARAESTHESIA [None]
